FAERS Safety Report 8917416 (Version 2)
Quarter: 2012Q4

REPORT INFORMATION
  Report Type: 
  Country: GB (occurrence: GB)
  Receive Date: 20121120
  Receipt Date: 20121130
  Transmission Date: 20130627
  Serious: Yes (Other)
  Sender: FDA-Public Use
  Company Number: GB-PFIZER INC-2012286266

PATIENT
  Age: 74 Year
  Sex: Male
  Weight: 86.07 kg

DRUGS (3)
  1. PRAVASTATIN SODIUM [Suspect]
     Indication: CHOLESTEROL HIGH
     Route: 048
     Dates: start: 20101011, end: 20121017
  2. AMLODIPINE BESILATE [Concomitant]
     Dosage: 5 mg, UNK
     Route: 048
     Dates: start: 20090114
  3. QUININE SULPHATE [Concomitant]
     Indication: CRAMPS CALF
     Route: 048
     Dates: end: 20121018

REACTIONS (2)
  - Neck pain [Recovering/Resolving]
  - Joint swelling [Recovered/Resolved]
